FAERS Safety Report 17070209 (Version 1)
Quarter: 2019Q4

REPORT INFORMATION
  Report Type: Spontaneous
  Country: GB (occurrence: GB)
  Receive Date: 20191125
  Receipt Date: 20191125
  Transmission Date: 20200122
  Serious: Yes (Hospitalization)
  Sender: FDA-Public Use
  Company Number: GB-TEVA-2019-GB-1140331

PATIENT
  Age: 65 Year
  Sex: Female
  Weight: 54 kg

DRUGS (12)
  1. AMOXICILLIN. [Concomitant]
     Active Substance: AMOXICILLIN
  2. FERROUS SULFATE. [Concomitant]
     Active Substance: FERROUS SULFATE
  3. MORPHINE [Concomitant]
     Active Substance: MORPHINE
  4. PARACETAMOL [Concomitant]
     Active Substance: ACETAMINOPHEN
  5. APIXABAN [Concomitant]
     Active Substance: APIXABAN
  6. ATORVASTATIN [Suspect]
     Active Substance: ATORVASTATIN
     Indication: HYPERCHOLESTEROLAEMIA
     Dosage: AT NIGHT 10  MG
     Route: 048
     Dates: start: 20191014, end: 20191018
  7. ETORICOXIB. [Concomitant]
     Active Substance: ETORICOXIB
  8. AMLODIPINE [Concomitant]
     Active Substance: AMLODIPINE BESYLATE
  9. SIMVASTATIN. [Concomitant]
     Active Substance: SIMVASTATIN
  10. CLARITHROMYCIN. [Concomitant]
     Active Substance: CLARITHROMYCIN
  11. PREGABALIN. [Concomitant]
     Active Substance: PREGABALIN
  12. LANSOPRAZOLE. [Concomitant]
     Active Substance: LANSOPRAZOLE

REACTIONS (2)
  - Metabolic acidosis [Unknown]
  - Diarrhoea [Recovering/Resolving]

NARRATIVE: CASE EVENT DATE: 20191014
